FAERS Safety Report 18223988 (Version 4)
Quarter: 2020Q4

REPORT INFORMATION
  Report Type: Spontaneous
  Country: CN (occurrence: TW)
  Receive Date: 20200902
  Receipt Date: 20201204
  Transmission Date: 20210113
  Serious: Yes (Death, Hospitalization, Other)
  Sender: FDA-Public Use
  Company Number: TW-BRISTOL-MYERS SQUIBB COMPANY-BMS-2020-070448

PATIENT
  Age: 53 Year
  Sex: Male
  Weight: 65 kg

DRUGS (3)
  1. SORAFENIB [Suspect]
     Active Substance: SORAFENIB
     Indication: PRODUCT USED FOR UNKNOWN INDICATION
     Dosage: UNK, BID
     Route: 065
     Dates: start: 20200706
  2. OPDIVO [Suspect]
     Active Substance: NIVOLUMAB
     Indication: HEPATIC CANCER
     Dosage: 3 MILLIGRAM/KILOGRAM, Q2WK
     Route: 041
     Dates: start: 20200706
  3. SORAFENIB [Suspect]
     Active Substance: SORAFENIB
     Indication: PRODUCT USED FOR UNKNOWN INDICATION
     Dosage: 200 MG/TAB
     Route: 048
     Dates: start: 20200703

REACTIONS (7)
  - Malignant neoplasm progression [Fatal]
  - Hepatic encephalopathy [Unknown]
  - Gastrooesophageal reflux disease [Unknown]
  - Portal hypertensive gastropathy [Unknown]
  - Haematochezia [Unknown]
  - Oesophageal varices haemorrhage [Unknown]
  - Gastric varices haemorrhage [Unknown]

NARRATIVE: CASE EVENT DATE: 20200826
